FAERS Safety Report 15007798 (Version 3)
Quarter: 2018Q4

REPORT INFORMATION
  Report Type: Spontaneous
  Country: US (occurrence: US)
  Receive Date: 20180613
  Receipt Date: 20181107
  Transmission Date: 20190204
  Serious: Yes (Hospitalization)
  Sender: FDA-Public Use
  Company Number: US-VIFOR (INTERNATIONAL) INC.-VIT-2018-05502

PATIENT
  Age: 62 Year
  Sex: Female
  Weight: 143.01 kg

DRUGS (14)
  1. CITALOPRAM HYDROBROMIDE. [Concomitant]
     Active Substance: CITALOPRAM HYDROBROMIDE
  2. CHLORTHALIDONE. [Concomitant]
     Active Substance: CHLORTHALIDONE
  3. LISINOPRIL. [Concomitant]
     Active Substance: LISINOPRIL
  4. SODIUM BICARBONATE. [Concomitant]
     Active Substance: SODIUM BICARBONATE
  5. SIMVASTATIN. [Concomitant]
     Active Substance: SIMVASTATIN
  6. FUROSEMIDE. [Concomitant]
     Active Substance: FUROSEMIDE
  7. VITAMIN B12 [Concomitant]
     Active Substance: CYANOCOBALAMIN
  8. VITAMIN D3 [Concomitant]
     Active Substance: CHOLECALCIFEROL
  9. LEVEMIR [Concomitant]
     Active Substance: INSULIN DETEMIR
  10. LABETALOL HCL [Concomitant]
     Active Substance: LABETALOL HYDROCHLORIDE
  11. IRON [Concomitant]
     Active Substance: IRON
  12. VELTASSA [Suspect]
     Active Substance: PATIROMER
     Indication: HYPERKALAEMIA
     Route: 048
     Dates: start: 20180330
  13. NOVOLOG [Concomitant]
     Active Substance: INSULIN ASPART
  14. ASPIRIN. [Concomitant]
     Active Substance: ASPIRIN

REACTIONS (5)
  - Abdominal discomfort [Unknown]
  - Hospitalisation [Unknown]
  - Product dose omission [Unknown]
  - Diarrhoea [Unknown]
  - Off label use [Unknown]

NARRATIVE: CASE EVENT DATE: 2018
